FAERS Safety Report 17197800 (Version 5)
Quarter: 2020Q2

REPORT INFORMATION
  Report Type: Report from Study
  Country: None (occurrence: NL)
  Receive Date: 20191224
  Receipt Date: 20200513
  Transmission Date: 20200713
  Serious: Yes (Other)
  Sender: FDA-Public Use
  Company Number: NL-ABBVIE-18K-114-2348674-00

PATIENT
  Age: 83 Year
  Sex: Female

DRUGS (16)
  1. DUODOPA [Suspect]
     Active Substance: CARBIDOPA\LEVODOPA
     Dosage: MD 7.5 CD 1.7 ED 2
     Route: 050
  2. CLOZAPINE. [Concomitant]
     Active Substance: CLOZAPINE
     Dosage: CLOZAPINE INCREASED TO 2 DAILY DOSES OF 6,25
  3. DUODOPA [Suspect]
     Active Substance: CARBIDOPA\LEVODOPA
     Dosage: MD: 7.5, CD: 3.3, ED: 2.0, CND: 1.8, END: 2.0 24 HOUR ADMINISTRATION
     Route: 050
  4. DUODOPA [Suspect]
     Active Substance: CARBIDOPA\LEVODOPA
     Dosage: MD: 7.5, CD: 3.7, ED: 2.5, CND: 1.8, END: 2.0 24 HOUR ADMINISTRATION
     Route: 050
  5. DUODOPA [Suspect]
     Active Substance: CARBIDOPA\LEVODOPA
     Dosage: MDD 7.5; CDD 3.2 ; EDD 2.5; CDN 2.0; EDN 2.0
     Route: 050
  6. DUODOPA [Suspect]
     Active Substance: CARBIDOPA\LEVODOPA
     Dosage: MD 12, CD 3.3, ED 1
     Route: 050
     Dates: start: 2018
  7. MACROGOL [Concomitant]
     Active Substance: POLYETHYLENE GLYCOLS
     Indication: ABNORMAL FAECES
  8. MOVICOLON [Concomitant]
     Active Substance: POLYETHYLENE GLYCOL 3350\POTASSIUM CHLORIDE\SODIUM BICARBONATE\SODIUM CHLORIDE
     Indication: ABNORMAL FAECES
  9. DUODOPA [Suspect]
     Active Substance: CARBIDOPA\LEVODOPA
     Dosage: MD 7.5?CD 1.6?ED 1
     Route: 050
  10. DUODOPA [Suspect]
     Active Substance: CARBIDOPA\LEVODOPA
     Dosage: MD: 7.5, CD: 3.4, ED: 2.5, CND: 2.0, END: 2.0; 24 HOUR?ADMINISTRATION
     Route: 050
  11. LEVODOPA/CARBIDOPA [Concomitant]
     Active Substance: CARBIDOPA\LEVODOPA
     Indication: PRODUCT USED FOR UNKNOWN INDICATION
     Route: 065
  12. DUODOPA [Suspect]
     Active Substance: CARBIDOPA\LEVODOPA
     Dosage: MDD 7.5; CDD 3,7 ; EDD 2,5; CDN 2,2 ; EDN 2.0
     Route: 050
  13. SINEMET [Concomitant]
     Active Substance: CARBIDOPA\LEVODOPA
     Indication: PRODUCT USED FOR UNKNOWN INDICATION
     Dosage: DAILY AT 2:30PM
  14. DUODOPA [Suspect]
     Active Substance: CARBIDOPA\LEVODOPA
     Indication: PRODUCT USED FOR UNKNOWN INDICATION
     Dosage: MD 11, CD 3.7, ED 1
     Route: 050
     Dates: start: 20180430, end: 2018
  15. DUODOPA [Suspect]
     Active Substance: CARBIDOPA\LEVODOPA
     Dosage: MDD 7.5; CDD 3.5 ; EDD 2.5; CDN 2.0; EDN 2.0
     Route: 050
  16. CLOZAPINE. [Concomitant]
     Active Substance: CLOZAPINE
     Indication: PRODUCT USED FOR UNKNOWN INDICATION

REACTIONS (50)
  - Weight decreased [Recovered/Resolved]
  - On and off phenomenon [Not Recovered/Not Resolved]
  - Dysgraphia [Recovered/Resolved]
  - Tremor [Not Recovered/Not Resolved]
  - Dementia [Not Recovered/Not Resolved]
  - Dyskinesia [Recovered/Resolved]
  - Hyperkinesia [Not Recovered/Not Resolved]
  - Memory impairment [Not Recovered/Not Resolved]
  - Stress [Not Recovered/Not Resolved]
  - Constipation [Recovered/Resolved]
  - Insomnia [Recovered/Resolved]
  - Device alarm issue [Unknown]
  - Intentional self-injury [Not Recovered/Not Resolved]
  - Discomfort [Recovered/Resolved]
  - Fall [Recovered/Resolved]
  - Memory impairment [Not Recovered/Not Resolved]
  - Incorrect route of product administration [Recovered/Resolved]
  - Hypophagia [Not Recovered/Not Resolved]
  - Confusional state [Not Recovered/Not Resolved]
  - Stoma site erythema [Recovered/Resolved]
  - Stoma site erythema [Recovered/Resolved]
  - Hallucination [Recovered/Resolved]
  - Feeling abnormal [Recovered/Resolved]
  - Incorrect route of product administration [Recovered/Resolved]
  - Aphasia [Not Recovered/Not Resolved]
  - Device dislocation [Unknown]
  - Stoma site discharge [Recovered/Resolved]
  - Abdominal distension [Not Recovered/Not Resolved]
  - Musculoskeletal stiffness [Not Recovered/Not Resolved]
  - General physical condition abnormal [Not Recovered/Not Resolved]
  - Abnormal faeces [Recovered/Resolved]
  - Loss of personal independence in daily activities [Not Recovered/Not Resolved]
  - Tremor [Recovered/Resolved]
  - Decreased appetite [Not Recovered/Not Resolved]
  - Abdominal pain upper [Not Recovered/Not Resolved]
  - Emotional distress [Not Recovered/Not Resolved]
  - Fibroma [Unknown]
  - Fluid intake reduced [Not Recovered/Not Resolved]
  - Gait disturbance [Not Recovered/Not Resolved]
  - Stoma site pain [Recovering/Resolving]
  - Therapeutic product effect variable [Not Recovered/Not Resolved]
  - Stoma site discharge [Recovered/Resolved]
  - Anxiety [Not Recovered/Not Resolved]
  - Muscle rigidity [Unknown]
  - Living alone [Not Recovered/Not Resolved]
  - General physical health deterioration [Not Recovered/Not Resolved]
  - Cognitive disorder [Not Recovered/Not Resolved]
  - Parkinson^s disease [Not Recovered/Not Resolved]
  - Haematoma [Not Recovered/Not Resolved]
  - Muscle spasms [Not Recovered/Not Resolved]

NARRATIVE: CASE EVENT DATE: 2018
